FAERS Safety Report 18167886 (Version 1)
Quarter: 2020Q3

REPORT INFORMATION
  Report Type: Report from Study
  Country: None (occurrence: CL)
  Receive Date: 20200819
  Receipt Date: 20200819
  Transmission Date: 20201103
  Serious: Yes (Other)
  Sender: FDA-Public Use
  Company Number: CL-ABBVIE-20K-034-3481612-00

PATIENT
  Age: 57 Year
  Sex: Male

DRUGS (1)
  1. HUMIRA [Suspect]
     Active Substance: ADALIMUMAB
     Indication: RHEUMATOID ARTHRITIS
     Route: 058
     Dates: start: 20171120

REACTIONS (9)
  - Gastric cancer [Not Recovered/Not Resolved]
  - Metastases to liver [Unknown]
  - Groin abscess [Not Recovered/Not Resolved]
  - Hypoaesthesia [Unknown]
  - Subcutaneous abscess [Not Recovered/Not Resolved]
  - Pyrexia [Unknown]
  - Tachycardia [Unknown]
  - Pain [Unknown]
  - Gait inability [Unknown]

NARRATIVE: CASE EVENT DATE: 2020
